FAERS Safety Report 7363697-2 (Version None)
Quarter: 2011Q1

REPORT INFORMATION
  Report Type: 
  Country: None (occurrence: None)
  Receive Date: 20110321
  Receipt Date: 20110106
  Transmission Date: 20110831
  Serious: No
  Sender: FDA-Public Use
  Company Number: A0903718A

PATIENT
  Age: 51 Year
  Sex: Female

DRUGS (19)
  1. PROMACTA [Suspect]
     Indication: IDIOPATHIC THROMBOCYTOPENIC PURPURA
     Dosage: 50MG PER DAY
     Route: 048
     Dates: start: 20101210, end: 20110106
  2. PREDNISONE [Suspect]
     Indication: IDIOPATHIC THROMBOCYTOPENIC PURPURA
     Route: 048
     Dates: start: 20100501
  3. PEPCID [Concomitant]
  4. CYMBALTA [Concomitant]
  5. CLONAZEPAM [Concomitant]
  6. NASONEX [Concomitant]
  7. FIBER SUPPLEMENT [Concomitant]
  8. VAGIFEM [Concomitant]
  9. MULTIPLE VITAMIN [Concomitant]
  10. UNKNOWN [Concomitant]
  11. EVOXAC [Concomitant]
  12. CALCIUM SUPPLEMENT [Concomitant]
  13. GLEEVEC [Suspect]
     Dosage: 200MG PER DAY
     Dates: start: 20101201
  14. OMEPRAZOLE [Concomitant]
  15. CLARITIN [Concomitant]
  16. LOTEMAX [Concomitant]
  17. RESTASIS [Concomitant]
  18. UNKNOWN [Concomitant]
  19. SYNTHROID [Concomitant]

REACTIONS (3)
  - RASH [None]
  - PLATELET COUNT DECREASED [None]
  - PRURITUS [None]
